FAERS Safety Report 21914145 (Version 1)
Quarter: 2023Q1

REPORT INFORMATION
  Report Type: Report from Study
  Country: ES (occurrence: ES)
  Receive Date: 20230126
  Receipt Date: 20230126
  Transmission Date: 20230417
  Serious: Yes (Other)
  Sender: FDA-Public Use
  Company Number: ES-JNJFOC-20230137315

PATIENT

DRUGS (1)
  1. IMBRUVICA [Suspect]
     Active Substance: IBRUTINIB
     Indication: Chronic lymphocytic leukaemia
     Route: 048

REACTIONS (20)
  - Atrial fibrillation [Unknown]
  - Hyperbilirubinaemia [Unknown]
  - Dyspnoea [Unknown]
  - Infection [Unknown]
  - Neutropenia [Unknown]
  - Thrombocytopenia [Unknown]
  - Nausea [Unknown]
  - Hypertension [Unknown]
  - Headache [Unknown]
  - Abdominal pain upper [Unknown]
  - Hyperuricaemia [Unknown]
  - Oedema [Unknown]
  - Mucosal inflammation [Unknown]
  - Vomiting [Unknown]
  - Toxicity to various agents [Unknown]
  - Cardiac failure [Unknown]
  - Haemorrhage [Unknown]
  - Neuropathy peripheral [Unknown]
  - Anaemia [Unknown]
  - Coronary artery disease [Unknown]
